FAERS Safety Report 22116298 (Version 1)
Quarter: 2023Q1

REPORT INFORMATION
  Report Type: Spontaneous
  Country: US (occurrence: None)
  Receive Date: 20230320
  Receipt Date: 20230320
  Transmission Date: 20230417
  Serious: Yes (Other)
  Sender: FDA-Public Use
  Company Number: None

PATIENT
  Age: 57 Year
  Sex: Male

DRUGS (1)
  1. XELODA [Suspect]
     Active Substance: CAPECITABINE
     Dosage: OTHER QUANTITY : 1500MG AM, 2000MG;?FREQUENCY : TWICE A DAY;?
     Route: 048

REACTIONS (1)
  - Dysuria [None]

NARRATIVE: CASE EVENT DATE: 20230312
